FAERS Safety Report 8509527-4 (Version None)
Quarter: 2012Q3

REPORT INFORMATION
  Report Type: 
  Country: None (occurrence: None)
  Receive Date: 20120713
  Receipt Date: 20120703
  Transmission Date: 20120928
  Serious: Yes (Other)
  Sender: FDA-Public Use
  Company Number: AR-AMGEN-ARGSP2012042460

PATIENT
  Age: 25 Year
  Sex: Female

DRUGS (4)
  1. LEFLUNOMIDE [Concomitant]
     Dosage: UNK
  2. OMEPRAZOLE [Concomitant]
     Dosage: UNK
  3. ENBREL [Suspect]
     Indication: RHEUMATOID ARTHRITIS
     Dosage: 25 MG EVERY 15 DAYS
     Route: 058
     Dates: start: 20090417, end: 20111201
  4. FOLIC ACID [Concomitant]
     Dosage: UNK

REACTIONS (3)
  - APPENDICITIS [None]
  - ECTOPIC PREGNANCY [None]
  - PERITONITIS [None]
